FAERS Safety Report 6749385-1 (Version None)
Quarter: 2010Q2

REPORT INFORMATION
  Report Type: 
  Country: None (occurrence: None)
  Receive Date: 20100601
  Receipt Date: 20100524
  Transmission Date: 20101027
  Serious: Yes (Other)
  Sender: FDA-Public Use
  Company Number: DE-ROCHE-705072

PATIENT
  Age: 22 Year
  Sex: Male

DRUGS (4)
  1. RIBAVIRIN [Suspect]
     Dosage: DOSE: WEIGHT BASED
     Route: 048
     Dates: start: 20031001, end: 20040401
  2. PEGINTERFERON ALFA-2B [Suspect]
     Dosage: DOSE: 1UG/O.I.W., DOSE WEIGHT BASED
     Route: 058
     Dates: start: 20031001
  3. PEGINTERFERON ALFA-2B [Suspect]
     Dosage: DOSE REDUCED BETWEEN WEEK 8-13
     Route: 058
  4. PEGINTERFERON ALFA-2B [Suspect]
     Dosage: DOSE REDUCED BETWEEN WEEK 22-24
     Route: 058
     Dates: end: 20040401

REACTIONS (1)
  - JAUNDICE [None]
